FAERS Safety Report 22629719 (Version 1)
Quarter: 2023Q2

REPORT INFORMATION
  Report Type: Spontaneous
  Country: AU (occurrence: AU)
  Receive Date: 20230622
  Receipt Date: 20230622
  Transmission Date: 20230722
  Serious: No
  Sender: FDA-Public Use
  Company Number: AU-JAZZ PHARMACEUTICALS-2023-AU-002895

PATIENT
  Age: 78 Year

DRUGS (1)
  1. ZEPZELCA [Suspect]
     Active Substance: LURBINECTEDIN
     Indication: Salivary gland cancer
     Dosage: 6.4 MILLIGRAM (2 X 4 MG)

REACTIONS (1)
  - Off label use [Unknown]
